FAERS Safety Report 8995948 (Version 1)
Quarter: 2013Q1

REPORT INFORMATION
  Report Type: Spontaneous
  Country: US (occurrence: US)
  Receive Date: 20130103
  Receipt Date: 20130103
  Transmission Date: 20140127
  Serious: Yes (Other)
  Sender: FDA-Public Use
  Company Number: CHPA2012US025819

PATIENT
  Age: 72 Year
  Sex: Male

DRUGS (4)
  1. EXCEDRIN EXTRA STRENGTH [Suspect]
     Indication: HEADACHE
     Dosage: 3 DF, PRN
     Route: 048
     Dates: end: 20100131
  2. EXCEDRIN EXTRA STRENGTH [Suspect]
     Dosage: 2 DF, PRN
     Route: 048
     Dates: start: 1960
  3. EXCEDRIN MIGRAINE [Suspect]
     Indication: MIGRAINE
     Dosage: 2 DF, PRN
     Route: 048
     Dates: start: 1998, end: 20100131
  4. DRUG THERAPY NOS [Concomitant]
     Indication: MIGRAINE
     Dosage: UNK, UNK
     Route: 048
     Dates: start: 1960, end: 20100131

REACTIONS (2)
  - Cerebrovascular accident [Recovered/Resolved]
  - Aphasia [Not Recovered/Not Resolved]
